FAERS Safety Report 14162520 (Version 2)
Quarter: 2017Q4

REPORT INFORMATION
  Report Type: Spontaneous
  Country: US (occurrence: US)
  Receive Date: 20171106
  Receipt Date: 20171127
  Transmission Date: 20180321
  Serious: No
  Sender: FDA-Public Use
  Company Number: US-PFIZER INC-2017476432

PATIENT
  Age: 80 Year
  Sex: Female

DRUGS (1)
  1. LATANOPROST. [Suspect]
     Active Substance: LATANOPROST
     Dosage: UNK (EYE DROPS)

REACTIONS (7)
  - Eye pruritus [Unknown]
  - Abnormal sensation in eye [Unknown]
  - Eye pain [Unknown]
  - Drug ineffective [Unknown]
  - Lacrimation increased [Unknown]
  - Eye irritation [Unknown]
  - Eye infection [Unknown]
